FAERS Safety Report 6534660-6 (Version None)
Quarter: 2010Q1

REPORT INFORMATION
  Report Type: 
  Country: None (occurrence: None)
  Receive Date: 20100112
  Receipt Date: 20100104
  Transmission Date: 20100710
  Serious: Yes (Hospitalization)
  Sender: FDA-Public Use
  Company Number: GXKR2009PL13201

PATIENT
  Age: 42 Year
  Sex: Male

DRUGS (6)
  1. ZOLPIDEM (NGX) [Suspect]
     Indication: INSOMNIA
     Dosage: MAXIMUM DOSE: 300 MG DAILY
     Route: 048
  2. ZOLPIDEM (NGX) [Suspect]
     Dosage: 60 MG, UNK
     Route: 048
  3. DIAZEPAM [Suspect]
     Dosage: MAXIMUM DOSE: 75 MG/DAY
     Route: 065
  4. DIAZEPAM [Suspect]
     Dosage: 50 MG/DAY
     Route: 065
  5. ALCOHOL [Concomitant]
     Dosage: 2-2.5 LITRES OF VODKA
     Route: 065
  6. MIRTAZAPINE [Concomitant]
     Route: 065

REACTIONS (7)
  - ABDOMINAL PAIN [None]
  - ASTHENIA [None]
  - DEPRESSION [None]
  - DRUG DEPENDENCE [None]
  - DRUG WITHDRAWAL SYNDROME [None]
  - INTENTIONAL DRUG MISUSE [None]
  - OVERDOSE [None]
